FAERS Safety Report 9199414 (Version 1)
Quarter: 2013Q1

REPORT INFORMATION
  Report Type: Spontaneous
  Country: US (occurrence: US)
  Receive Date: 20130329
  Receipt Date: 20130329
  Transmission Date: 20140127
  Serious: No
  Sender: FDA-Public Use
  Company Number: US-009507513-1303USA008004

PATIENT
  Sex: Male

DRUGS (5)
  1. RIBAVIRIN [Suspect]
     Indication: CHRONIC HEPATITIS C
     Dosage: 1200, MG, QD
     Dates: start: 20120713
  2. BOCEPREVIR [Suspect]
     Indication: CHRONIC HEPATITIS C
  3. PEGASYS [Suspect]
     Indication: CHRONIC HEPATITIS C
     Dosage: 180 MICROGRAM, QW
     Route: 058
     Dates: start: 20120713
  4. TELAPREVIR [Suspect]
     Indication: CHRONIC HEPATITIS C
  5. WELLBUTRIN [Concomitant]
     Indication: DEPRESSION

REACTIONS (12)
  - Fatigue [Unknown]
  - Anaemia [Unknown]
  - Depressed mood [Unknown]
  - Decreased appetite [Unknown]
  - Asthenia [Unknown]
  - Viral load increased [Unknown]
  - Energy increased [Unknown]
  - Increased appetite [Unknown]
  - Influenza [Unknown]
  - Malaise [Unknown]
  - Oropharyngeal pain [Unknown]
  - Hepatitis C RNA decreased [Unknown]
